FAERS Safety Report 6461232-4 (Version None)
Quarter: 2009Q4

REPORT INFORMATION
  Report Type: 
  Country: None (occurrence: None)
  Receive Date: 20091130
  Receipt Date: 20091119
  Transmission Date: 20100525
  Serious: Yes (Other)
  Sender: FDA-Public Use
  Company Number: US-JNJFOC-20091106754

PATIENT
  Sex: Female
  Weight: 83.92 kg

DRUGS (20)
  1. REMICADE [Suspect]
     Route: 042
     Dates: start: 20010701, end: 20050101
  2. REMICADE [Suspect]
     Indication: CROHN'S DISEASE
     Route: 042
     Dates: start: 20010701, end: 20050101
  3. CIPRO [Suspect]
     Indication: DRUG USE FOR UNKNOWN INDICATION
  4. CHLORZOXAZONE [Concomitant]
     Indication: INTERVERTEBRAL DISC COMPRESSION
  5. OXYCONTIN [Concomitant]
     Indication: PAIN
  6. SEROQUEL [Concomitant]
     Indication: SLEEP DISORDER THERAPY
  7. SINGULAIR [Concomitant]
     Indication: MULTIPLE ALLERGIES
  8. ATARAX [Concomitant]
     Indication: PRURITUS
  9. LEXAPRO [Concomitant]
     Indication: DEPRESSION
  10. MAXZIDE [Concomitant]
     Indication: FLUID RETENTION
     Dosage: DOSE: 75/50
  11. PHENERGAN HCL [Concomitant]
     Indication: NAUSEA
  12. MECLIZINE [Concomitant]
     Indication: VERTIGO
  13. REGLAN [Concomitant]
     Indication: IMPAIRED GASTRIC EMPTYING
  14. SYMBICORT [Concomitant]
     Indication: ASTHMA
  15. SYMBICORT [Concomitant]
     Indication: MULTIPLE ALLERGIES
  16. COMBIVENT [Concomitant]
  17. ALBUTEROL [Concomitant]
     Indication: RESPIRATORY DISORDER
  18. KLONOPIN [Concomitant]
     Indication: NERVOUSNESS
  19. RESTORIL [Concomitant]
     Indication: SLEEP DISORDER THERAPY
  20. STEROIDS NOS [Concomitant]
     Indication: PREMEDICATION

REACTIONS (10)
  - BILIARY CIRRHOSIS PRIMARY [None]
  - CHEST DISCOMFORT [None]
  - COLLAPSE OF LUNG [None]
  - DYSPNOEA [None]
  - INFUSION RELATED REACTION [None]
  - PANCREATIC DISORDER [None]
  - PNEUMONIA [None]
  - PNEUMOTHORAX [None]
  - RESPIRATORY ARREST [None]
  - THERAPEUTIC RESPONSE DECREASED [None]
